FAERS Safety Report 6383654-2 (Version None)
Quarter: 2009Q4

REPORT INFORMATION
  Report Type: 
  Country: None (occurrence: None)
  Receive Date: 20091001
  Receipt Date: 20090903
  Transmission Date: 20100525
  Serious: Yes (Other)
  Sender: FDA-Public Use
  Company Number: US-JNJFOC-20090908939

PATIENT
  Sex: Female
  Weight: 104.33 kg

DRUGS (7)
  1. DURAGESIC-100 [Suspect]
     Route: 062
  2. DURAGESIC-100 [Suspect]
     Indication: BACK PAIN
     Route: 062
  3. LORCET-HD [Concomitant]
     Indication: PAIN
     Dosage: 10/650 MG
     Route: 048
  4. CYMBALTA [Concomitant]
     Route: 048
  5. CYMBALTA [Concomitant]
     Indication: PAIN
     Route: 048
  6. NEURONTIN [Concomitant]
     Indication: PAIN
     Route: 048
  7. LIDODERM [Concomitant]
     Indication: PAIN
     Route: 062

REACTIONS (10)
  - DISORIENTATION [None]
  - DRUG EFFECT DECREASED [None]
  - DYSARTHRIA [None]
  - EAR DISCOMFORT [None]
  - FALL [None]
  - PRODUCT QUALITY ISSUE [None]
  - SOMNOLENCE [None]
  - SWELLING FACE [None]
  - THERAPY CESSATION [None]
  - WRONG TECHNIQUE IN DRUG USAGE PROCESS [None]
